FAERS Safety Report 21358691 (Version 1)
Quarter: 2022Q3

REPORT INFORMATION
  Report Type: Report from Study
  Country: IT (occurrence: IT)
  Receive Date: 20220921
  Receipt Date: 20220921
  Transmission Date: 20221026
  Serious: Yes (Other)
  Sender: FDA-Public Use
  Company Number: None

PATIENT
  Age: 57 Year
  Sex: Female

DRUGS (5)
  1. MONTELUKAST [Suspect]
     Active Substance: MONTELUKAST SODIUM
     Indication: Asthma
     Dosage: 30 MG / TOTAL
  2. QUETIAPINE FUMARATE [Suspect]
     Active Substance: QUETIAPINE FUMARATE
     Indication: Affective disorder
     Dosage: 850 MG (6 CP OF 100 MG + 5 CP OF 50 MG) / TOTAL
  3. BISOPROLOL [Suspect]
     Active Substance: BISOPROLOL
     Indication: Hypertension
     Dosage: 30 MG / TOTAL
  4. BROMAZEPAM [Suspect]
     Active Substance: BROMAZEPAM
     Indication: Affective disorder
     Dosage: 7 ML / TOTAL
  5. XANAX [Suspect]
     Active Substance: ALPRAZOLAM
     Indication: Affective disorder
     Dosage: 10 ML / TOTAL

REACTIONS (4)
  - Confusional state [Recovering/Resolving]
  - Drug abuse [Unknown]
  - Apraxia [Recovering/Resolving]
  - Sopor [Recovering/Resolving]

NARRATIVE: CASE EVENT DATE: 20220413
